FAERS Safety Report 9086743 (Version 1)
Quarter: 2013Q1

REPORT INFORMATION
  Report Type: Spontaneous
  Country: FR (occurrence: FR)
  Receive Date: 20130131
  Receipt Date: 20130131
  Transmission Date: 20140127
  Serious: Yes (Other)
  Sender: FDA-Public Use
  Company Number: FR-PFIZER INC-2013035643

PATIENT
  Age: 39 Year
  Sex: Female

DRUGS (1)
  1. NEURONTIN [Suspect]
     Indication: EPILEPSY
     Dosage: 1200 MG DAILY

REACTIONS (5)
  - Cardiac disorder [Unknown]
  - Asthenia [Unknown]
  - Peripheral coldness [Unknown]
  - Feeling hot [Unknown]
  - Pain [Unknown]
